FAERS Safety Report 5175602-8 (Version None)
Quarter: 2006Q4

REPORT INFORMATION
  Report Type: 
  Country: None (occurrence: None)
  Receive Date: 20061212
  Receipt Date: 20061212
  Transmission Date: 20070319
  Serious: Yes (Other)
  Sender: FDA-Public Use
  Company Number: None

PATIENT
  Age: 59 Year
  Sex: Male
  Weight: 113.3993 kg

DRUGS (2)
  1. CLARITIN-D 24 HOUR [Suspect]
     Indication: EAR INFECTION
     Dosage: 1 24 HOURS
     Dates: start: 20061111, end: 20061115
  2. CLARITIN-D 24 HOUR [Suspect]
     Indication: EAR INFECTION
     Dosage: 1 24 HOURS
     Dates: start: 20061116, end: 20061120

REACTIONS (3)
  - AGITATION [None]
  - INSOMNIA [None]
  - NERVOUSNESS [None]
